FAERS Safety Report 10333475 (Version 1)
Quarter: 2014Q3

REPORT INFORMATION
  Report Type: Spontaneous
  Country: US (occurrence: US)
  Receive Date: 20140722
  Receipt Date: 20140722
  Transmission Date: 20150326
  Serious: No
  Sender: FDA-Public Use
  Company Number: US-SA-2014SA058258

PATIENT
  Age: 76 Year
  Sex: Female

DRUGS (1)
  1. ZOLPIDEM TARTRATE. [Suspect]
     Active Substance: ZOLPIDEM TARTRATE
     Indication: PRODUCT USED FOR UNKNOWN INDICATION
     Dosage: TAKEN FROM- 20 YEARS
     Route: 048

REACTIONS (3)
  - Sluggishness [Unknown]
  - Somnolence [Unknown]
  - Drug effect incomplete [Unknown]
